FAERS Safety Report 20926359 (Version 1)
Quarter: 2022Q2

REPORT INFORMATION
  Report Type: Spontaneous
  Country: US (occurrence: US)
  Receive Date: 20220607
  Receipt Date: 20220607
  Transmission Date: 20220721
  Serious: No
  Sender: FDA-Public Use
  Company Number: US-METUCHEN-STN-2017-0659

PATIENT
  Sex: Male

DRUGS (1)
  1. AVANAFIL [Suspect]
     Active Substance: AVANAFIL
     Indication: Erectile dysfunction
     Dosage: CUTS 200 MG TABLETS IN HALF BEFORE USING THEM
     Route: 048

REACTIONS (2)
  - Wrong technique in product usage process [Unknown]
  - No adverse event [Unknown]
